FAERS Safety Report 5565620-X (Version None)
Quarter: 2007Q4

REPORT INFORMATION
  Report Type: 
  Country: None (occurrence: None)
  Receive Date: 20071218
  Receipt Date: 20071016
  Transmission Date: 20080405
  Serious: No
  Sender: FDA-Public Use
  Company Number: US-BOEHRINGER INGELHEIM PHARMACEUTICALS, INC.-2007-BP-05279PF

PATIENT
  Sex: Female

DRUGS (13)
  1. SPIRIVA [Suspect]
     Indication: CHRONIC OBSTRUCTIVE PULMONARY DISEASE
     Dates: start: 20070110, end: 20070301
  2. SPIRIVA [Suspect]
     Indication: ASTHMA
  3. CHANTIX [Concomitant]
     Indication: SMOKING CESSATION THERAPY
     Route: 048
     Dates: start: 20070326
  4. CYMBALTA [Concomitant]
  5. CLONAZEPAM [Concomitant]
  6. WELLBUTRIN [Concomitant]
  7. METHADONE HCL [Concomitant]
  8. LYRICA [Concomitant]
  9. TOPROL-XL [Concomitant]
  10. TIZANIDINE HCL [Concomitant]
  11. GLYBURIDE [Concomitant]
  12. LIPITOR [Concomitant]
  13. ALEVE [Concomitant]

REACTIONS (3)
  - COUGH [None]
  - INSOMNIA [None]
  - NAUSEA [None]
